FAERS Safety Report 5669757-6 (Version None)
Quarter: 2008Q1

REPORT INFORMATION
  Report Type: 
  Country: None (occurrence: None)
  Receive Date: 20080313
  Receipt Date: 20080313
  Transmission Date: 20080703
  Serious: Yes (Other)
  Sender: FDA-Public Use
  Company Number: None

PATIENT
  Age: 36 Year
  Sex: Female

DRUGS (6)
  1. LAPATINIB [Suspect]
     Indication: BREAST CANCER METASTATIC
     Dosage: 1500MG ORAL, INTERMITTEN
     Route: 048
     Dates: start: 20070814, end: 20080207
  2. VINORELBINE [Suspect]
     Indication: BREAST CANCER
     Dosage: 15MG/M2, IV, 3 OF 4 WKS
     Route: 042
     Dates: start: 20070813, end: 20080128
  3. OXYCONTIN [Concomitant]
  4. ATIVAN [Concomitant]
  5. COMPAZINE [Concomitant]
  6. NEUPOGEN [Concomitant]

REACTIONS (5)
  - BREAST CANCER METASTATIC [None]
  - DISEASE PROGRESSION [None]
  - DYSPNOEA [None]
  - NEUTROPENIA [None]
  - TREATMENT NONCOMPLIANCE [None]
